FAERS Safety Report 11818897 (Version 1)
Quarter: 2015Q4

REPORT INFORMATION
  Report Type: Spontaneous
  Country: US (occurrence: None)
  Receive Date: 20151209
  Receipt Date: 20151209
  Transmission Date: 20160305
  Serious: Yes (Life-Threatening)
  Sender: FDA-Public Use
  Company Number: None

PATIENT
  Age: 73 Year
  Sex: Female
  Weight: 83.01 kg

DRUGS (9)
  1. LEVOTHYROXIN [Concomitant]
     Active Substance: LEVOTHYROXINE
  2. RANITIDINE [Concomitant]
     Active Substance: RANITIDINE\RANITIDINE HYDROCHLORIDE
  3. VITAMIN B12 [Concomitant]
     Active Substance: CYANOCOBALAMIN
  4. VITAMIN D3 [Concomitant]
     Active Substance: CHOLECALCIFEROL
  5. VITAMIN A [Concomitant]
     Active Substance: VITAMIN A
  6. AZITHROMYCIN [Suspect]
     Active Substance: AZITHROMYCIN ANHYDROUS
     Indication: SINUS DISORDER
     Dosage: 3 PILLS
     Route: 048
     Dates: start: 20151104, end: 20151104
  7. VITAMIN WOMENS 50+ MULTI [Concomitant]
  8. VITAMIN B6 [Concomitant]
     Active Substance: PYRIDOXINE HYDROCHLORIDE
  9. GLUCOSAMINE MAXIMUM STRENGTH [Concomitant]

REACTIONS (5)
  - Abdominal pain upper [None]
  - Paraesthesia [None]
  - Nausea [None]
  - Asthenia [None]
  - Blood pressure increased [None]

NARRATIVE: CASE EVENT DATE: 20151104
